FAERS Safety Report 5007982-8 (Version None)
Quarter: 2006Q2

REPORT INFORMATION
  Report Type: 
  Country: None (occurrence: None)
  Receive Date: 20060518
  Receipt Date: 20060505
  Transmission Date: 20061013
  Serious: Yes (Hospitalization, Other)
  Sender: FDA-Public Use
  Company Number: 8016933

PATIENT
  Age: 21 Year
  Sex: Male

DRUGS (2)
  1. KEPPRA [Suspect]
  2. KEPPRA [Suspect]

REACTIONS (4)
  - HEPATIC FAILURE [None]
  - HEPATIC NECROSIS [None]
  - HEPATOTOXICITY [None]
  - LIVER TRANSPLANT [None]
